FAERS Safety Report 6785795-4 (Version None)
Quarter: 2010Q2

REPORT INFORMATION
  Report Type: 
  Country: None (occurrence: None)
  Receive Date: 20100623
  Receipt Date: 20100609
  Transmission Date: 20101027
  Serious: Yes (Hospitalization)
  Sender: FDA-Public Use
  Company Number: DE-TEVA-237892ISR

PATIENT
  Sex: Female

DRUGS (2)
  1. COPAXONE [Suspect]
     Indication: MULTIPLE SCLEROSIS
     Route: 058
     Dates: start: 20060526
  2. ANTIBIOTICS NOS [Interacting]

REACTIONS (3)
  - DRUG INTERACTION [None]
  - INJECTION SITE HYPERSENSITIVITY [None]
  - INJECTION SITE SWELLING [None]
